FAERS Safety Report 13025914 (Version 1)
Quarter: 2016Q4

REPORT INFORMATION
  Report Type: Spontaneous
  Country: GR (occurrence: GR)
  Receive Date: 20161214
  Receipt Date: 20161214
  Transmission Date: 20170207
  Serious: Yes (Hospitalization)
  Sender: FDA-Public Use
  Company Number: PHHY2016GR166745

PATIENT
  Age: 56 Year
  Sex: Female

DRUGS (1)
  1. PAZOPANIB [Suspect]
     Active Substance: PAZOPANIB
     Indication: RENAL CELL CARCINOMA
     Dosage: 800 MG, QD
     Route: 048

REACTIONS (16)
  - Vomiting [Unknown]
  - Hyperlipidaemia [Unknown]
  - Generalised oedema [Unknown]
  - Retinopathy hypertensive [Unknown]
  - Nephrotic syndrome [Unknown]
  - Headache [Recovering/Resolving]
  - Dizziness [Recovering/Resolving]
  - Gait disturbance [Unknown]
  - Nausea [Unknown]
  - Proteinuria [Unknown]
  - Haematuria [Unknown]
  - Hypoproteinaemia [Unknown]
  - Posterior reversible encephalopathy syndrome [Unknown]
  - Oedema peripheral [Recovering/Resolving]
  - Renal impairment [Unknown]
  - Hypertension [Unknown]
